FAERS Safety Report 9340540 (Version 2)
Quarter: 2013Q2

REPORT INFORMATION
  Report Type: Report from Study
  Country: DE (occurrence: DE)
  Receive Date: 20130610
  Receipt Date: 20130626
  Transmission Date: 20140414
  Serious: Yes (Hospitalization)
  Sender: FDA-Public Use
  Company Number: DE-TEVA-411178USA

PATIENT
  Age: 65 Year
  Sex: Male
  Weight: 172 kg

DRUGS (4)
  1. BENDAMUSTINE [Suspect]
     Indication: CHRONIC LYMPHOCYTIC LEUKAEMIA
     Route: 042
     Dates: start: 20090407
  2. BENDAMUSTINE [Suspect]
     Route: 042
     Dates: start: 20090903
  3. RITUXIMAB [Suspect]
     Indication: CHRONIC LYMPHOCYTIC LEUKAEMIA
     Route: 042
     Dates: start: 20090406
  4. RITUXIMAB [Suspect]
     Route: 042
     Dates: start: 20090902

REACTIONS (2)
  - Electrocardiogram ST segment depression [Recovered/Resolved with Sequelae]
  - Coronary artery disease [Recovered/Resolved with Sequelae]
